FAERS Safety Report 4375558-1 (Version None)
Quarter: 2004Q2

REPORT INFORMATION
  Report Type: 
  Country: None (occurrence: None)
  Receive Date: 20040610
  Receipt Date: 20040528
  Transmission Date: 20050107
  Serious: Yes (Other)
  Sender: FDA-Public Use
  Company Number: PHBS2004FR07274

PATIENT
  Age: 68 Year
  Sex: Male

DRUGS (2)
  1. FLUVASTATIN SODIUM [Suspect]
     Indication: HYPERLIPIDAEMIA
  2. PRAVASTATIN [Suspect]
     Indication: HYPERLIPIDAEMIA

REACTIONS (7)
  - ANTINUCLEAR ANTIBODY POSITIVE [None]
  - BLOOD CREATINE PHOSPHOKINASE INCREASED [None]
  - MUSCULAR WEAKNESS [None]
  - MYALGIA [None]
  - POLYMYOSITIS [None]
  - PULMONARY FIBROSIS [None]
  - PULMONARY FUNCTION TEST ABNORMAL [None]
